FAERS Safety Report 7577408-9 (Version None)
Quarter: 2011Q2

REPORT INFORMATION
  Report Type: 
  Country: None (occurrence: None)
  Receive Date: 20110621
  Receipt Date: 20110607
  Transmission Date: 20111010
  Serious: Yes (Hospitalization)
  Sender: FDA-Public Use
  Company Number: 2011MA007079

PATIENT
  Age: 74 Year
  Sex: Female

DRUGS (9)
  1. ENOXAPARIN SODIUM [Suspect]
     Indication: THROMBOSIS PROPHYLAXIS
     Dosage: 40 MG; QD; SC
     Route: 058
     Dates: start: 20110502, end: 20110514
  2. CALCICHEW D3 [Concomitant]
  3. ETORICOXIB (ETORICOXIB) [Suspect]
     Indication: OSTEOARTHRITIS
     Dosage: 60 MG; QD; PO
     Route: 048
     Dates: end: 20110514
  4. ACETAMINOPHEN [Concomitant]
  5. LEVOTHYROXINE SODIUM [Concomitant]
  6. IBUPROFEN [Suspect]
     Dosage: 400 MG; TID; PO
     Route: 048
  7. ALENDRONIC ACID [Concomitant]
  8. FORTISIP [Concomitant]
  9. SODIUM CHLORIDE [Concomitant]

REACTIONS (1)
  - DUODENAL ULCER [None]
